FAERS Safety Report 5041338-7 (Version None)
Quarter: 2006Q2

REPORT INFORMATION
  Report Type: 
  Country: None (occurrence: None)
  Receive Date: 20060628
  Receipt Date: 20060615
  Transmission Date: 20061013
  Serious: No
  Sender: FDA-Public Use
  Company Number: A-CH2006-12486

PATIENT
  Age: 48 Year
  Sex: Female

DRUGS (2)
  1. TRACLEER [Suspect]
     Dosage: 62.5 MG, BID, ORAL
     Route: 048
     Dates: start: 20060404, end: 20060425
  2. SILDENAFIL CITRATE [Concomitant]

REACTIONS (3)
  - ALANINE AMINOTRANSFERASE INCREASED [None]
  - ASPARTATE AMINOTRANSFERASE INCREASED [None]
  - HEPATIC FUNCTION ABNORMAL [None]
